FAERS Safety Report 8405973-8 (Version None)
Quarter: 2012Q2

REPORT INFORMATION
  Report Type: 
  Country: None (occurrence: None)
  Receive Date: 20120604
  Receipt Date: 20120524
  Transmission Date: 20120825
  Serious: Yes (Hospitalization)
  Sender: FDA-Public Use
  Company Number: CA-JNJFOC-20120518917

PATIENT
  Sex: Female
  Weight: 95 kg

DRUGS (3)
  1. REMICADE [Suspect]
     Route: 042
     Dates: start: 20111216
  2. REMICADE [Suspect]
     Indication: CROHN'S DISEASE
     Route: 042
     Dates: start: 20111028
  3. REMICADE [Suspect]
     Route: 042
     Dates: end: 20120518

REACTIONS (2)
  - ABDOMINAL PAIN [None]
  - DIARRHOEA [None]
